FAERS Safety Report 4826966-3 (Version None)
Quarter: 2005Q4

REPORT INFORMATION
  Report Type: 
  Country: None (occurrence: None)
  Receive Date: 20051114
  Receipt Date: 20051031
  Transmission Date: 20060501
  Serious: Yes (Hospitalization)
  Sender: FDA-Public Use
  Company Number: JP-JNJFOC-20050906197

PATIENT
  Sex: Male

DRUGS (6)
  1. LEUSTATIN [Suspect]
     Route: 065
  2. FLUCONAZOLE [Concomitant]
     Route: 048
  3. SULFAMETHOXAZOLE + TRIMETHOPRIM [Concomitant]
     Route: 048
  4. SULFAMETHOXAZOLE + TRIMETHOPRIM [Concomitant]
     Route: 048
  5. ALLOPURINOL [Concomitant]
     Route: 048
  6. RANITIDINE [Concomitant]
     Indication: GASTRITIS
     Route: 048

REACTIONS (3)
  - DERMATITIS ALLERGIC [None]
  - DRUG ERUPTION [None]
  - PYREXIA [None]
